FAERS Safety Report 7702363-8 (Version None)
Quarter: 2011Q3

REPORT INFORMATION
  Report Type: 
  Country: None (occurrence: None)
  Receive Date: 20110822
  Receipt Date: 20110812
  Transmission Date: 20111222
  Serious: Yes (Hospitalization, Disabling)
  Sender: FDA-Public Use
  Company Number: JP-AMGEN-JPNCT2011012545

PATIENT
  Age: 69 Year
  Sex: Female
  Weight: 50 kg

DRUGS (15)
  1. IRINOTECAN HCL [Suspect]
     Indication: COLORECTAL CANCER
     Route: 041
     Dates: start: 20100826, end: 20100826
  2. RINDERON-V [Concomitant]
     Dosage: UNK
     Route: 062
  3. MYSER [Concomitant]
     Dosage: UNK
     Route: 062
  4. AZUNOL ST [Concomitant]
     Dosage: UNK
     Route: 049
  5. DECADRON [Concomitant]
     Dosage: UNK
     Route: 042
  6. PANITUMUMAB [Suspect]
     Dosage: 6 MG/KG, Q2WK
     Route: 041
     Dates: start: 20101014, end: 20101028
  7. PANITUMUMAB [Suspect]
     Dosage: 6 MG/KG, Q2WK
     Route: 041
     Dates: start: 20110113, end: 20110113
  8. PANITUMUMAB [Suspect]
     Indication: COLORECTAL CANCER
     Dosage: 6 MG/KG, Q2WK
     Route: 041
     Dates: start: 20100826, end: 20100909
  9. ALOXI [Concomitant]
     Dosage: UNK
     Route: 042
  10. CORTICOSTEROIDS [Concomitant]
     Indication: PROPHYLAXIS
     Dosage: UNK
     Route: 065
  11. LOCOID [Concomitant]
     Dosage: UNK
     Route: 062
  12. EMEND [Concomitant]
     Dosage: UNK
     Route: 048
  13. HIRUDOID [Concomitant]
     Dosage: UNK
     Route: 062
  14. PANITUMUMAB [Suspect]
     Dosage: 6 MG/KG, Q2WK
     Route: 041
     Dates: start: 20101206, end: 20101206
  15. DEXALTIN [Concomitant]
     Dosage: UNK
     Route: 062

REACTIONS (3)
  - INTRACRANIAL ANEURYSM [None]
  - NAUSEA [None]
  - DERMATITIS ACNEIFORM [None]
